FAERS Safety Report 7789172-9 (Version None)
Quarter: 2011Q3

REPORT INFORMATION
  Report Type: 
  Country: None (occurrence: None)
  Receive Date: 20110930
  Receipt Date: 20110921
  Transmission Date: 20111222
  Serious: Yes (Hospitalization)
  Sender: FDA-Public Use
  Company Number: US-JNJFOC-20110909235

PATIENT
  Sex: Female
  Weight: 86.18 kg

DRUGS (6)
  1. MELOXICAM [Concomitant]
     Indication: PSORIATIC ARTHROPATHY
     Route: 048
  2. LANTUS [Concomitant]
     Indication: TYPE 2 DIABETES MELLITUS
     Route: 058
  3. METHOTREXATE [Concomitant]
     Indication: PSORIATIC ARTHROPATHY
     Route: 048
  4. LEVOTHYROXINE [Concomitant]
     Route: 048
  5. SIMPONI [Suspect]
     Indication: PSORIATIC ARTHROPATHY
     Route: 058
     Dates: start: 20110910
  6. JANUMET [Concomitant]
     Indication: TYPE 2 DIABETES MELLITUS
     Route: 058

REACTIONS (10)
  - ASTHENIA [None]
  - INJECTION SITE PAIN [None]
  - SUNBURN [None]
  - INJECTION SITE PARAESTHESIA [None]
  - PARAESTHESIA [None]
  - DRUG INEFFECTIVE [None]
  - HYPOAESTHESIA [None]
  - KIDNEY INFECTION [None]
  - BACK PAIN [None]
  - PAIN [None]
